FAERS Safety Report 13912606 (Version 1)
Quarter: 2017Q3

REPORT INFORMATION
  Report Type: Spontaneous
  Country: BD (occurrence: BD)
  Receive Date: 20170828
  Receipt Date: 20170828
  Transmission Date: 20171127
  Serious: Yes (Other)
  Sender: FDA-Public Use
  Company Number: PHHY2017BD126242

PATIENT

DRUGS (1)
  1. EXELON PATCH [Suspect]
     Active Substance: RIVASTIGMINE
     Indication: PRODUCT USED FOR UNKNOWN INDICATION
     Dosage: 9 MG, QD (PATCH 5 (CM2)
     Route: 062

REACTIONS (3)
  - Rash [Unknown]
  - Dementia [Unknown]
  - Skin irritation [Unknown]

NARRATIVE: CASE EVENT DATE: 20170823
